FAERS Safety Report 9148284 (Version 1)
Quarter: 2013Q1

REPORT INFORMATION
  Report Type: Spontaneous
  Country: US (occurrence: None)
  Receive Date: 20130228
  Receipt Date: 20130228
  Transmission Date: 20140127
  Serious: Yes (Other)
  Sender: FDA-Public Use
  Company Number: None

PATIENT
  Age: 81 Year
  Sex: Female
  Weight: 83.46 kg

DRUGS (2)
  1. LEVEMIR [Suspect]
     Indication: GESTATIONAL DIABETES
     Dosage: 24 UNITS  HS  SUBQ
     Route: 058
     Dates: start: 20121127, end: 20130122
  2. NOVOLOG [Suspect]
     Dosage: 11 - 16 UNITS WITH MEALS SUBQ
     Route: 058

REACTIONS (2)
  - Injection site rash [None]
  - Injection site pruritus [None]
